FAERS Safety Report 6596046-8 (Version None)
Quarter: 2010Q1

REPORT INFORMATION
  Report Type: 
  Country: None (occurrence: None)
  Receive Date: 20100219
  Receipt Date: 20100219
  Transmission Date: 20100710
  Serious: Yes (Life-Threatening)
  Sender: FDA-Public Use
  Company Number: None

PATIENT
  Age: 55 Year
  Sex: Male
  Weight: 100.24 kg

DRUGS (1)
  1. MORPHINE [Suspect]
     Indication: PAIN
     Dosage: PRN PO
     Route: 048
     Dates: start: 20090908, end: 20090909

REACTIONS (5)
  - LETHARGY [None]
  - RESPIRATORY DEPRESSION [None]
  - SEDATION [None]
  - TACHYCARDIA [None]
  - UNRESPONSIVE TO STIMULI [None]
